FAERS Safety Report 6638737-6 (Version None)
Quarter: 2010Q1

REPORT INFORMATION
  Report Type: 
  Country: None (occurrence: None)
  Receive Date: 20100316
  Receipt Date: 20100316
  Transmission Date: 20100710
  Serious: Yes (Death)
  Sender: FDA-Public Use
  Company Number: None

PATIENT
  Age: 76 Year
  Sex: Male
  Weight: 104.3273 kg

DRUGS (2)
  1. XOLAIR [Suspect]
     Indication: ASTHMA
     Dosage: 225 MG Q2WEEKS SQ
     Route: 058
     Dates: start: 20090716, end: 20100106
  2. XOLAIR [Suspect]

REACTIONS (1)
  - BONE CANCER METASTATIC [None]
